FAERS Safety Report 9408180 (Version 1)
Quarter: 2013Q3

REPORT INFORMATION
  Report Type: Spontaneous
  Country: JP (occurrence: JP)
  Receive Date: 20130718
  Receipt Date: 20130718
  Transmission Date: 20140515
  Serious: Yes (Other)
  Sender: FDA-Public Use
  Company Number: JP-VERTEX PHARMACEUTICALS INC-2013-008081

PATIENT
  Age: 48 Year
  Sex: Male

DRUGS (1)
  1. TELAVIC [Suspect]
     Dosage: UNK
     Route: 048
     Dates: start: 201204, end: 201206

REACTIONS (1)
  - Depression [Unknown]
